FAERS Safety Report 8766348 (Version 2)
Quarter: 2012Q4

REPORT INFORMATION
  Report Type: 
  Country: FR (occurrence: FR)
  Receive Date: 20120904
  Receipt Date: 20120914
  Transmission Date: 20130627
  Serious: Yes (Hospitalization)
  Sender: FDA-Public Use
  Company Number: FR-009507513-1208FRA012580

PATIENT

DRUGS (12)
  1. NORSET [Suspect]
     Indication: PRODUCT USED FOR UNKNOWN INDICATION
     Dosage: 15 mg, qd
     Route: 048
     Dates: start: 20120706
  2. OLANZAPINE [Suspect]
     Dosage: 7.5 mg, qd
     Route: 048
     Dates: start: 20081226
  3. VENLAFAXINE [Suspect]
     Dosage: 150 mg, qd
     Route: 048
     Dates: start: 20120706
  4. LAMOTRIGINE [Suspect]
     Dosage: 150 mg, qd
     Route: 048
     Dates: start: 20120706
  5. IMOVANE [Suspect]
     Dosage: UNK
     Route: 048
     Dates: start: 20090522
  6. LEPTICUR [Suspect]
     Dosage: 5 mg, tid
     Route: 048
     Dates: start: 20090522
  7. GLUCOPHAGE [Suspect]
     Dosage: 1000 mg, bid
     Route: 048
     Dates: start: 20090511
  8. MECIR [Suspect]
     Dosage: 0.4 mg, qd
     Dates: start: 20090522
  9. PLAVIX [Suspect]
     Dosage: 1 DF, qd
     Dates: start: 20090522
  10. SPASFON-LYOC [Suspect]
     Dosage: 80 mg, tid
  11. SERESTA [Suspect]
     Dosage: 50 mg, qd
  12. HEMI-DAONIL [Suspect]
     Dosage: 2.5 mg, qd

REACTIONS (1)
  - Gait disturbance [Recovered/Resolved]
